FAERS Safety Report 18983057 (Version 4)
Quarter: 2022Q2

REPORT INFORMATION
  Report Type: Spontaneous
  Country: US (occurrence: US)
  Receive Date: 20210308
  Receipt Date: 20220427
  Transmission Date: 20220720
  Serious: No
  Sender: FDA-Public Use
  Company Number: US-SUNOVION-2021SUN000628

PATIENT
  Sex: Female
  Weight: 66 kg

DRUGS (3)
  1. LATUDA [Suspect]
     Active Substance: LURASIDONE HYDROCHLORIDE
     Indication: Bipolar disorder
     Dosage: 60 MG
     Route: 048
     Dates: start: 20190105, end: 20200205
  2. LATUDA [Suspect]
     Active Substance: LURASIDONE HYDROCHLORIDE
     Indication: Depression
     Dosage: 60 MG
     Route: 048
     Dates: start: 20220403, end: 20220322
  3. LATUDA [Suspect]
     Active Substance: LURASIDONE HYDROCHLORIDE
     Dosage: 80 MG (60MG TABLET AND A HALF OF ANOTHER PILL TO EQUAL 80MG)
     Route: 048
     Dates: start: 20220422

REACTIONS (8)
  - General physical health deterioration [Not Recovered/Not Resolved]
  - Mental disorder [Recovered/Resolved]
  - Panic reaction [Recovered/Resolved]
  - Malaise [Recovered/Resolved]
  - Attention deficit hyperactivity disorder [Unknown]
  - Anxiety [Unknown]
  - Therapy cessation [Unknown]
  - Wrong technique in product usage process [Unknown]
